FAERS Safety Report 8019797-7 (Version None)
Quarter: 2012Q1

REPORT INFORMATION
  Report Type: 
  Country: None (occurrence: None)
  Receive Date: 20120103
  Receipt Date: 20111230
  Transmission Date: 20120608
  Serious: Yes (Death, Hospitalization)
  Sender: FDA-Public Use
  Company Number: IT-BAYER-2012-000127

PATIENT
  Age: 86 Year
  Sex: Female

DRUGS (6)
  1. VENLAFAXINE [Suspect]
     Indication: COGNITIVE DISORDER
     Dosage: 75 MG, QD
     Route: 048
     Dates: start: 20111013, end: 20111116
  2. METHOTREXATE [Interacting]
     Dosage: 50 MG, UNK
  3. CIPROFLOXACIN HCL [Interacting]
     Indication: URINARY TRACT INFECTION
     Dosage: 500 MG, BID
     Route: 048
     Dates: start: 20111025, end: 20111101
  4. EFFEXOR [Suspect]
     Indication: COGNITIVE DISORDER
  5. ALLOPURINOL [Concomitant]
     Dosage: 300 MG, UNK
     Route: 048
  6. ALENDRONIC ACID [Concomitant]
     Dosage: 70 MG, UNK
     Route: 048

REACTIONS (3)
  - THROMBOCYTOPENIA [None]
  - AGRANULOCYTOSIS [None]
  - PANCYTOPENIA [None]
